FAERS Safety Report 20360637 (Version 1)
Quarter: 2022Q1

REPORT INFORMATION
  Report Type: Spontaneous
  Country: US (occurrence: None)
  Receive Date: 20220120
  Receipt Date: 20220120
  Transmission Date: 20220424
  Serious: Yes (Hospitalization)
  Sender: FDA-Public Use
  Company Number: None

PATIENT
  Age: 48 Year
  Sex: Female

DRUGS (1)
  1. KESIMPTA [Suspect]
     Active Substance: OFATUMUMAB
     Dosage: 20MG OTHER SUBCUTANNEOUS
     Route: 058
     Dates: start: 202108

REACTIONS (3)
  - Fibromyalgia [None]
  - Arthritis [None]
  - Neoplasm malignant [None]

NARRATIVE: CASE EVENT DATE: 20220120
